FAERS Safety Report 9986805 (Version 1)
Quarter: 2014Q1

REPORT INFORMATION
  Report Type: Report from Study
  Country: BR (occurrence: BR)
  Receive Date: 20140307
  Receipt Date: 20140307
  Transmission Date: 20141002
  Serious: Yes (Other)
  Sender: FDA-Public Use
  Company Number: PHHY2014BR028233

PATIENT
  Sex: Female
  Weight: 80 kg

DRUGS (3)
  1. ACLASTA [Suspect]
     Indication: OSTEOPOROSIS
     Dosage: 5 MG, UNK
     Route: 042
     Dates: start: 2012
  2. EUTHYROX [Concomitant]
     Indication: THYROID DISORDER
     Dosage: UNK UKN, UNK
     Dates: start: 2008
  3. NATRILIX [Concomitant]
     Indication: BLOOD PRESSURE ABNORMAL
     Dosage: UNK UKN, UNK
     Dates: start: 2013

REACTIONS (2)
  - Retinal injury [Not Recovered/Not Resolved]
  - Blindness [Not Recovered/Not Resolved]
